FAERS Safety Report 19642906 (Version 1)
Quarter: 2021Q3

REPORT INFORMATION
  Report Type: Other
  Country: CH (occurrence: CH)
  Receive Date: 20210730
  Receipt Date: 20210730
  Transmission Date: 20211014
  Serious: Yes (Hospitalization)
  Sender: FDA-Public Use
  Company Number: CH-GENUS_LIFESCIENCES-USA-POI0580202100120

PATIENT
  Age: 40 Year
  Sex: Female

DRUGS (1)
  1. GOPRELTO [Suspect]
     Active Substance: COCAINE HYDROCHLORIDE
     Indication: SUBSTANCE USE
     Route: 045
     Dates: start: 2020, end: 2020

REACTIONS (4)
  - Anaemia macrocytic [Recovered/Resolved]
  - Nasal septum perforation [Recovered/Resolved]
  - Systemic inflammatory response syndrome [Recovered/Resolved]
  - Vasculitis necrotising [Recovered/Resolved]

NARRATIVE: CASE EVENT DATE: 2020
